FAERS Safety Report 19015036 (Version 7)
Quarter: 2022Q4

REPORT INFORMATION
  Report Type: Spontaneous
  Country: IN (occurrence: IN)
  Receive Date: 20210316
  Receipt Date: 20221222
  Transmission Date: 20230112
  Serious: Yes (Other)
  Sender: FDA-Public Use
  Company Number: IN-PFIZER INC-2019434576

PATIENT
  Age: 48 Year
  Sex: Male

DRUGS (3)
  1. CRIZOTINIB [Suspect]
     Active Substance: CRIZOTINIB
     Indication: Lung adenocarcinoma
     Dosage: 250 MG, 2X/DAY
     Route: 048
     Dates: start: 20190515
  2. CRIZOTINIB [Suspect]
     Active Substance: CRIZOTINIB
     Dosage: 125 MG, 2X/DAY
     Route: 048
     Dates: start: 20191126
  3. CRIZOTINIB [Suspect]
     Active Substance: CRIZOTINIB
     Dosage: 250 MG, 2X/DAY
     Route: 048

REACTIONS (10)
  - Bronchiectasis [Unknown]
  - Cerebral haemorrhage [Unknown]
  - Brain oedema [Unknown]
  - Off label use [Unknown]
  - Neoplasm progression [Not Recovered/Not Resolved]
  - Pleural cyst [Unknown]
  - Lymphadenopathy [Unknown]
  - Soft tissue disorder [Unknown]
  - Nodule [Unknown]
  - Peripheral swelling [Unknown]

NARRATIVE: CASE EVENT DATE: 20191126
